FAERS Safety Report 5568022-5 (Version None)
Quarter: 2007Q4

REPORT INFORMATION
  Report Type: 
  Country: None (occurrence: None)
  Receive Date: 20071220
  Receipt Date: 20071218
  Transmission Date: 20080405
  Serious: Yes (Other)
  Sender: FDA-Public Use
  Company Number: FR-JNJFOC-20071001480

PATIENT
  Sex: Female
  Weight: 61 kg

DRUGS (4)
  1. REMINYL [Suspect]
     Indication: DEMENTIA ALZHEIMER'S TYPE
  2. SOTALOL HCL [Concomitant]
  3. SIMVASTATIN [Concomitant]
  4. ZOLOFT [Concomitant]

REACTIONS (1)
  - ERUCTATION [None]
